FAERS Safety Report 10246369 (Version 3)
Quarter: 2020Q2

REPORT INFORMATION
  Report Type: Spontaneous
  Country: US (occurrence: US)
  Receive Date: 20140619
  Receipt Date: 20200518
  Transmission Date: 20200713
  Serious: No
  Sender: FDA-Public Use
  Company Number: US-PFIZER INC-2014167160

PATIENT
  Age: 74 Year
  Sex: Female
  Weight: 61.2 kg

DRUGS (2)
  1. PREMARIN [Suspect]
     Active Substance: ESTROGENS, CONJUGATED
     Dosage: 1.25 MG, DAILY
     Dates: start: 201406
  2. PREMARIN [Suspect]
     Active Substance: ESTROGENS, CONJUGATED
     Dosage: UNK [HALF OF 1.25MG], DAILY

REACTIONS (3)
  - Drug ineffective [Not Recovered/Not Resolved]
  - Depression [Unknown]
  - Hot flush [Unknown]

NARRATIVE: CASE EVENT DATE: 20140612
